FAERS Safety Report 9912730 (Version 1)
Quarter: 2014Q1

REPORT INFORMATION
  Report Type: Spontaneous
  Country: US (occurrence: US)
  Receive Date: 20140220
  Receipt Date: 20140220
  Transmission Date: 20141002
  Serious: No
  Sender: FDA-Public Use
  Company Number: US-PFIZER INC-2014044635

PATIENT
  Sex: Male

DRUGS (1)
  1. ZOSYN [Suspect]
     Dosage: UNK EVERY 6 HOURS
     Route: 063
     Dates: start: 20140213

REACTIONS (4)
  - Exposure during breast feeding [Unknown]
  - Irritability [Unknown]
  - Rash [Unknown]
  - Diarrhoea [Unknown]
